FAERS Safety Report 5777583-2 (Version None)
Quarter: 2008Q2

REPORT INFORMATION
  Report Type: 
  Country: None (occurrence: None)
  Receive Date: 20080616
  Receipt Date: 20080605
  Transmission Date: 20081010
  Serious: Yes (Hospitalization)
  Sender: FDA-Public Use
  Company Number: 2008-01985

PATIENT
  Age: 48 Year
  Sex: Female

DRUGS (2)
  1. VELCADE [Suspect]
     Indication: MULTIPLE MYELOMA
     Dosage: 2.4 MG,IV BOLUS
     Route: 040
     Dates: start: 20080501
  2. DOXIL [Concomitant]

REACTIONS (3)
  - BLOOD CREATININE INCREASED [None]
  - DISEASE PROGRESSION [None]
  - PLATELET COUNT DECREASED [None]
